FAERS Safety Report 7426792-5 (Version None)
Quarter: 2011Q2

REPORT INFORMATION
  Report Type: 
  Country: None (occurrence: None)
  Receive Date: 20110420
  Receipt Date: 20110414
  Transmission Date: 20111010
  Serious: Yes (Hospitalization, Other)
  Sender: FDA-Public Use
  Company Number: US-MERCK-0807USA03270

PATIENT
  Age: 53 Year
  Sex: Female
  Weight: 79 kg

DRUGS (9)
  1. NAPROSYN [Concomitant]
     Route: 065
  2. FOSAMAX PLUS D [Suspect]
     Indication: OSTEOPOROSIS
     Route: 048
     Dates: start: 20060125, end: 20080701
  3. SYNTHROID [Concomitant]
     Indication: HYPOTHYROIDISM
     Route: 048
     Dates: start: 19950301
  4. CALCIUM (UNSPECIFIED) [Concomitant]
     Route: 065
     Dates: start: 19860101, end: 20100101
  5. CADUET [Concomitant]
     Route: 065
  6. FOSAMAX [Suspect]
     Route: 048
     Dates: start: 20011228, end: 20060125
  7. FOSAMAX [Suspect]
     Indication: OSTEOPOROSIS
     Route: 048
     Dates: start: 19960707, end: 20011228
  8. LEVOXYL [Concomitant]
     Route: 065
  9. OMEGA-3 MARINE TRIGLYCERIDES [Concomitant]
     Route: 065

REACTIONS (30)
  - ABDOMINAL INJURY [None]
  - LOW TURNOVER OSTEOPATHY [None]
  - FEMUR FRACTURE [None]
  - UPPER LIMB FRACTURE [None]
  - NAUSEA [None]
  - RADIUS FRACTURE [None]
  - N-TELOPEPTIDE URINE [None]
  - OSTEOPENIA [None]
  - CONTUSION [None]
  - HYPERCALCIURIA [None]
  - PAIN [None]
  - FALL [None]
  - FIBULA FRACTURE [None]
  - JOINT INJURY [None]
  - LACERATION [None]
  - WRIST FRACTURE [None]
  - RIB FRACTURE [None]
  - HUMERUS FRACTURE [None]
  - FRACTURE DELAYED UNION [None]
  - ROAD TRAFFIC ACCIDENT [None]
  - HYPERPARATHYROIDISM [None]
  - WEIGHT INCREASED [None]
  - DIABETES MELLITUS [None]
  - PARATHYROID TUMOUR BENIGN [None]
  - ACCIDENT [None]
  - LIVER FUNCTION TEST ABNORMAL [None]
  - IMPAIRED HEALING [None]
  - HYPERLIPIDAEMIA [None]
  - BLOOD PARATHYROID HORMONE INCREASED [None]
  - RENAL DISORDER [None]
